FAERS Safety Report 5071060-2 (Version None)
Quarter: 2006Q3

REPORT INFORMATION
  Report Type: 
  Country: None (occurrence: None)
  Receive Date: 20060804
  Receipt Date: 20060117
  Transmission Date: 20061208
  Serious: Yes (Other)
  Sender: FDA-Public Use
  Company Number: US-GLAXOSMITHKLINE-A0589621A

PATIENT
  Age: 42 Year
  Sex: Male

DRUGS (1)
  1. NICORETTE [Suspect]
     Indication: DRUG WITHDRAWAL MAINTENANCE THERAPY
     Dosage: 4MG UNKNOWN
     Dates: start: 20040101, end: 20060115

REACTIONS (4)
  - DEPRESSION [None]
  - DRUG ABUSER [None]
  - INSOMNIA [None]
  - LISTLESS [None]
